FAERS Safety Report 4340125-2 (Version None)
Quarter: 2004Q2

REPORT INFORMATION
  Report Type: 
  Country: None (occurrence: None)
  Receive Date: 20040416
  Receipt Date: 20040414
  Transmission Date: 20050107
  Serious: Yes (Death)
  Sender: FDA-Public Use
  Company Number: PHBS2004CH04964

PATIENT
  Sex: Female

DRUGS (5)
  1. METHERGINE [Suspect]
     Dosage: .2 MG, UNK
     Route: 030
  2. SYNTOCINON [Suspect]
     Dosage: 10 IU, UNK
     Route: 040
  3. SYNTOCINON [Suspect]
     Dosage: 10 IU, UNK
  4. SYNTOCINON [Suspect]
     Dosage: 20 IU, UNK
  5. NALADOR [Suspect]
     Dosage: 1 MG, UNK

REACTIONS (7)
  - CIRCULATORY COLLAPSE [None]
  - HYSTERECTOMY [None]
  - MEDICATION ERROR [None]
  - POSTPARTUM HAEMORRHAGE [None]
  - PROCEDURAL COMPLICATION [None]
  - UTERINE ATONY [None]
  - VENTRICULAR FIBRILLATION [None]
